FAERS Safety Report 4308354-1 (Version None)
Quarter: 2004Q1

REPORT INFORMATION
  Report Type: 
  Country: None (occurrence: None)
  Receive Date: 20040301
  Receipt Date: 20031204
  Transmission Date: 20041129
  Serious: Yes (Hospitalization)
  Sender: FDA-Public Use
  Company Number: PHHO2003JP15783

PATIENT
  Age: 62 Year
  Sex: Female

DRUGS (2)
  1. DIOVAN [Suspect]
     Indication: HYPERTENSION
     Dosage: 80 MG, QD
     Route: 048
     Dates: start: 20030602
  2. ADALAT [Concomitant]

REACTIONS (5)
  - BLOOD PRESSURE INCREASED [None]
  - DIZZINESS [None]
  - HEADACHE [None]
  - HYPERTENSIVE ENCEPHALOPATHY [None]
  - NAUSEA [None]
